FAERS Safety Report 8223166-4 (Version None)
Quarter: 2012Q1

REPORT INFORMATION
  Report Type: 
  Country: None (occurrence: None)
  Receive Date: 20120321
  Receipt Date: 20120312
  Transmission Date: 20120608
  Serious: No
  Sender: FDA-Public Use
  Company Number: US-BIOGENIDEC-2012BI008910

PATIENT
  Age: 41 Year
  Sex: Female

DRUGS (2)
  1. AVONEX [Suspect]
     Indication: MULTIPLE SCLEROSIS
     Route: 030
  2. AVONEX [Suspect]
     Route: 030
     Dates: start: 20120130

REACTIONS (6)
  - PARAESTHESIA [None]
  - MALAISE [None]
  - DISCOMFORT [None]
  - FEELING COLD [None]
  - LOSS OF CONTROL OF LEGS [None]
  - MOBILITY DECREASED [None]
